FAERS Safety Report 8425918-4 (Version None)
Quarter: 2012Q2

REPORT INFORMATION
  Report Type: 
  Country: None (occurrence: None)
  Receive Date: 20120601
  Receipt Date: 20120521
  Transmission Date: 20120825
  Serious: Yes (Hospitalization)
  Sender: FDA-Public Use
  Company Number: DSA_57486_2012

PATIENT
  Sex: Male

DRUGS (3)
  1. WELLBUTRIN SR [Suspect]
     Indication: PRODUCT USED FOR UNKNOWN INDICATION
     Dosage: (150 MG QD ORAL), (300 MG QD ORAL)
     Route: 048
     Dates: start: 20120101, end: 20120101
  2. WELLBUTRIN SR [Suspect]
     Indication: PRODUCT USED FOR UNKNOWN INDICATION
     Dosage: (150 MG QD ORAL), (300 MG QD ORAL)
     Route: 048
     Dates: start: 20120101, end: 20120501
  3. WELLBUTRIN SR [Suspect]
     Indication: PRODUCT USED FOR UNKNOWN INDICATION
     Dosage: (150 MG QD ORAL), (300 MG QD ORAL)
     Route: 048
     Dates: start: 20120501

REACTIONS (3)
  - ISCHAEMIA [None]
  - HEMIPLEGIA [None]
  - HYPERTENSION [None]
